FAERS Safety Report 24624094 (Version 2)
Quarter: 2024Q4

REPORT INFORMATION
  Report Type: Report from Study
  Country: IE (occurrence: IE)
  Receive Date: 20241115
  Receipt Date: 20241121
  Transmission Date: 20250115
  Serious: Yes (Other)
  Sender: ROCHE
  Company Number: IE-ROCHE-3224422

PATIENT
  Sex: Female

DRUGS (1)
  1. OCREVUS [Suspect]
     Active Substance: OCRELIZUMAB
     Indication: Product used for unknown indication
     Dosage: 600MGS X 2 VIALS 200MGS
     Route: 042

REACTIONS (4)
  - Pain in extremity [Unknown]
  - Bladder spasm [Unknown]
  - COVID-19 [Recovered/Resolved]
  - Urinary tract infection [Unknown]
